FAERS Safety Report 13449761 (Version 1)
Quarter: 2017Q2

REPORT INFORMATION
  Report Type: Spontaneous
  Country: US (occurrence: US)
  Receive Date: 20170417
  Receipt Date: 20170417
  Transmission Date: 20170830
  Serious: No
  Sender: FDA-Public Use
  Company Number: US-BANPHARM-20164736

PATIENT
  Age: 87 Year
  Sex: Male
  Weight: 72.57 kg

DRUGS (2)
  1. BAYER LOW DOSE [Suspect]
     Active Substance: ASPIRIN
     Dosage: 1 DF, QD,
  2. ALEVE [Suspect]
     Active Substance: NAPROXEN SODIUM
     Indication: ARTHRITIS
     Dosage: 2 DF, EVERY OTHER DAY
     Route: 048
     Dates: start: 2011

REACTIONS (1)
  - Incorrect drug administration duration [Not Recovered/Not Resolved]
